FAERS Safety Report 13879445 (Version 1)
Quarter: 2017Q3

REPORT INFORMATION
  Report Type: Spontaneous
  Country: US (occurrence: US)
  Receive Date: 20170817
  Receipt Date: 20170817
  Transmission Date: 20171127
  Serious: No
  Sender: FDA-Public Use
  Company Number: US-ENDO PHARMACEUTICALS INC-2017-000571

PATIENT
  Age: 24 Year
  Sex: Male
  Weight: 63.49 kg

DRUGS (4)
  1. SUMAVEL DOSEPRO [Suspect]
     Active Substance: SUMATRIPTAN SUCCINATE
     Dosage: UNK UNKNOWN, PRN
     Route: 058
     Dates: start: 201602
  2. ZOMIG [Concomitant]
     Active Substance: ZOLMITRIPTAN
     Indication: MIGRAINE
     Dosage: UNK UNKNOWN, UNKNOWN
  3. SUMAVEL DOSEPRO [Suspect]
     Active Substance: SUMATRIPTAN SUCCINATE
     Indication: MIGRAINE
     Dosage: UNK UNKNOWN, PRN
     Route: 058
     Dates: start: 201602
  4. TRIPTYLINE [Concomitant]
     Active Substance: AMITRIPTYLINE HYDROCHLORIDE
     Indication: INSOMNIA
     Dosage: UNK UNKNOWN, UNKNOWN

REACTIONS (6)
  - Underdose [Unknown]
  - Injection site pain [Unknown]
  - Device malfunction [Unknown]
  - Laceration [Unknown]
  - Foreign body [Unknown]
  - Product quality issue [Unknown]

NARRATIVE: CASE EVENT DATE: 20170127
